FAERS Safety Report 4679241-4 (Version None)
Quarter: 2005Q2

REPORT INFORMATION
  Report Type: 
  Country: None (occurrence: None)
  Receive Date: 20050531
  Receipt Date: 20050531
  Transmission Date: 20051028
  Serious: Yes (Other)
  Sender: FDA-Public Use
  Company Number: None

PATIENT
  Sex: Female
  Weight: 72.5755 kg

DRUGS (2)
  1. EFFEXOR XR [Suspect]
     Indication: ANXIETY
     Dosage: 1 DAY ORAL
     Route: 048
     Dates: start: 19970410, end: 20050524
  2. EFFEXOR XR [Suspect]
     Indication: INSOMNIA
     Dosage: 1 DAY ORAL
     Route: 048
     Dates: start: 19970410, end: 20050524

REACTIONS (6)
  - BALANCE DISORDER [None]
  - DRUG WITHDRAWAL SYNDROME [None]
  - FEELING HOT AND COLD [None]
  - HUNGER [None]
  - MORBID THOUGHTS [None]
  - NERVOUS SYSTEM DISORDER [None]
